FAERS Safety Report 17324274 (Version 1)
Quarter: 2020Q1

REPORT INFORMATION
  Report Type: Other
  Country: GB (occurrence: GB)
  Receive Date: 20200127
  Receipt Date: 20200127
  Transmission Date: 20200409
  Serious: Yes (Life-Threatening, Disabling, Other)
  Sender: FDA-Public Use
  Company Number: GB-GLENMARK PHARMACEUTICALS-2020GMK045438

PATIENT

DRUGS (3)
  1. LAMOTRIGINE. [Suspect]
     Active Substance: LAMOTRIGINE
     Indication: FEELINGS OF WORTHLESSNESS
     Dosage: 100 MG, UNK
     Route: 048
     Dates: start: 20181220
  2. CITALOPRAM [Suspect]
     Active Substance: CITALOPRAM HYDROBROMIDE
     Indication: FEELINGS OF WORTHLESSNESS
     Dosage: 20 MG, UNK
     Route: 048
     Dates: start: 20181001
  3. ELVANSE [Concomitant]
     Active Substance: LISDEXAMFETAMINE DIMESYLATE
     Indication: PRODUCT USED FOR UNKNOWN INDICATION
     Dosage: UNK
     Route: 065

REACTIONS (5)
  - Disturbance in attention [Not Recovered/Not Resolved]
  - Suicidal behaviour [Recovered/Resolved]
  - Emotional disorder [Unknown]
  - Insomnia [Not Recovered/Not Resolved]
  - Self-injurious ideation [Recovered/Resolved]

NARRATIVE: CASE EVENT DATE: 20190101
